FAERS Safety Report 8553078 (Version 2)
Quarter: 2013Q1

REPORT INFORMATION
  Report Type: Spontaneous
  Country: US (occurrence: US)
  Receive Date: 20120509
  Receipt Date: 20130318
  Transmission Date: 20140127
  Serious: Yes (Other)
  Sender: FDA-Public Use
  Company Number: US-PFIZER INC-2012109294

PATIENT
  Age: 85 Year
  Sex: Female

DRUGS (23)
  1. PREMARIN [Suspect]
     Dosage: 0.625 MG, 1/2 APPL. ONCE A WEEK
     Route: 067
  2. XANAX [Suspect]
     Dosage: 0.25 MG, 1 TO 2 TABLET THRICE DAILY AS NEEDED
     Route: 048
  3. ASPIRIN [Concomitant]
     Dosage: 81 MG, ENTERIC COATED TAKE 1 TABLET EVERY DAY BEFORE NOON
     Route: 048
  4. ATACAND [Concomitant]
     Dosage: 16 MG, 1X/DAY
     Route: 048
  5. BUMETANIDE [Concomitant]
     Dosage: 2 MG, 1X/DAY
     Route: 048
  6. POTASSIUM CHLORIDE [Concomitant]
     Dosage: 20 MEQ, 2X/DAY
     Route: 048
  7. SIMVASTATIN [Concomitant]
     Dosage: 40 MG, TAKE 1 TABLET AT BEDTIME
     Route: 048
  8. ATIVAN [Concomitant]
     Dosage: 1 MG, UNK
     Route: 048
  9. BACLOFEN [Concomitant]
     Dosage: 10 MG, 2X/DAY
     Route: 048
  10. BIOTIN [Concomitant]
     Dosage: 5000 UG, 1X/DAY
     Route: 048
  11. DARVOCET [Concomitant]
     Indication: PAIN
  12. HYDROCODONE W/ACETAMINOPHEN [Concomitant]
     Dosage: 7.5MG/325 MG TABLET, 1-2 TABLETS Q4-6HOURS AS NEEDED
     Route: 048
  13. L-LYSINE [Concomitant]
     Dosage: 500 MG, 2X/DAY
     Route: 048
  14. LUNESTA [Concomitant]
     Dosage: 2 MG, UNK
  15. MULTAQ [Concomitant]
     Dosage: 400 MG, 2X/DAY, TAKE 1 TABLET BID WITH MORNING AND EVENING MEALS
     Route: 048
  16. NIACIN [Concomitant]
     Dosage: 500 MG, 1X/DAY
     Route: 048
  17. OMEGA 3 FATTY ACIDS [Concomitant]
     Dosage: 1 DF, 2X/DAY
     Route: 048
  18. PRILOSEC [Concomitant]
     Dosage: 40 MG, 1X/DAY
     Route: 048
  19. SINGULAIR [Concomitant]
     Dosage: 10 MG
     Route: 048
  20. MULTIVITAMINS [Concomitant]
  21. MYRBETRIQ [Concomitant]
     Dosage: 25 MG, 1X/DAY
     Route: 048
  22. DEXILANT [Concomitant]
     Dosage: 60 MG, 1X/DAY
     Route: 048
  23. VISION FORMULA [Concomitant]
     Dosage: 1 DF, 1X/DAY

REACTIONS (3)
  - Hypertension [Unknown]
  - Urinary incontinence [Unknown]
  - Atrophic vulvovaginitis [Unknown]
